APPROVED DRUG PRODUCT: HYDROCODONE BITARTRATE AND ACETAMINOPHEN
Active Ingredient: ACETAMINOPHEN; HYDROCODONE BITARTRATE
Strength: 325MG;7.5MG
Dosage Form/Route: TABLET;ORAL
Application: A202214 | Product #002 | TE Code: AA
Applicant: TRIS PHARMA INC
Approved: Mar 27, 2013 | RLD: No | RS: No | Type: RX